FAERS Safety Report 16522653 (Version 1)
Quarter: 2019Q3

REPORT INFORMATION
  Report Type: Spontaneous
  Country: CA (occurrence: CA)
  Receive Date: 20190702
  Receipt Date: 20190702
  Transmission Date: 20191004
  Serious: Yes (Hospitalization, Other)
  Sender: FDA-Public Use
  Company Number: CA-GLAXOSMITHKLINE-CA2019AMR114751

PATIENT
  Sex: Male

DRUGS (1)
  1. VOLTAREN EMULGEL UNKNOWN [Suspect]
     Active Substance: DICLOFENAC DIETHYLAMINE
     Indication: ARTHRALGIA
     Dosage: UNK

REACTIONS (1)
  - Necrotising fasciitis [Recovered/Resolved]
